FAERS Safety Report 12705144 (Version 1)
Quarter: 2016Q3

REPORT INFORMATION
  Report Type: Spontaneous
  Country: US (occurrence: None)
  Receive Date: 20160831
  Receipt Date: 20160831
  Transmission Date: 20161109
  Serious: Yes (Life-Threatening, Disabling)
  Sender: FDA-Public Use
  Company Number: None

PATIENT
  Age: 19 Year
  Sex: Male
  Weight: 77.11 kg

DRUGS (9)
  1. AZELASTINE [Concomitant]
     Active Substance: AZELASTINE
  2. ADDERALL [Concomitant]
     Active Substance: AMPHETAMINE ASPARTATE\AMPHETAMINE SULFATE\DEXTROAMPHETAMINE SACCHARATE\DEXTROAMPHETAMINE SULFATE
  3. GABAPENTIN. [Concomitant]
     Active Substance: GABAPENTIN
  4. ASPIRIN. [Concomitant]
     Active Substance: ASPIRIN
  5. CAFFEINE. [Concomitant]
     Active Substance: CAFFEINE
  6. SUBUTEX [Concomitant]
     Active Substance: BUPRENORPHINE HYDROCHLORIDE
  7. SINGULAIR [Suspect]
     Active Substance: MONTELUKAST SODIUM
     Indication: RESPIRATORY DISORDER
     Dosage: 30 TABLET(S) IN THE MORNING TAKEN BY MOUTH
     Route: 048
     Dates: start: 20160829, end: 20160830
  8. XANAX [Concomitant]
     Active Substance: ALPRAZOLAM
  9. IBPROFEN [Concomitant]

REACTIONS (15)
  - Chest pain [None]
  - Sleep disorder [None]
  - Hypoaesthesia [None]
  - Palpitations [None]
  - Dissociative disorder [None]
  - Asthma [None]
  - Anxiety [None]
  - Dyspnoea [None]
  - Panic reaction [None]
  - Nightmare [None]
  - Paraesthesia [None]
  - Attention deficit/hyperactivity disorder [None]
  - Sinus disorder [None]
  - Fatigue [None]
  - Anger [None]

NARRATIVE: CASE EVENT DATE: 20160830
